FAERS Safety Report 20158664 (Version 1)
Quarter: 2021Q4

REPORT INFORMATION
  Report Type: Spontaneous
  Country: FR (occurrence: FR)
  Receive Date: 20211208
  Receipt Date: 20211208
  Transmission Date: 20220303
  Serious: Yes (Hospitalization, Other)
  Sender: FDA-Public Use
  Company Number: FR-EGIS-HUN-2021-1132

PATIENT
  Age: 20 Year
  Sex: Female
  Weight: 50 kg

DRUGS (2)
  1. HYDROXYZINE [Suspect]
     Active Substance: HYDROXYZINE HYDROCHLORIDE
     Indication: Product used for unknown indication
     Dosage: UNK (TOOK WITH ALCOHOL AND SUMETROLIM)
     Route: 065
  2. SULFAMETHOXAZOLE\TRIMETHOPRIM [Suspect]
     Active Substance: SULFAMETHOXAZOLE\TRIMETHOPRIM
     Indication: Product used for unknown indication
     Dosage: UNK (FORM STRENGTH: 400 MG SULFAMETHOXAZOLE /80 MG TRIMETHOPRIM, TOOK WITH HYDROXYZINE AND ALCOHOL)
     Route: 065

REACTIONS (2)
  - Suicide attempt [Recovered/Resolved]
  - Product origin unknown [Unknown]
